FAERS Safety Report 17762236 (Version 1)
Quarter: 2020Q2

REPORT INFORMATION
  Report Type: Spontaneous
  Country: US (occurrence: US)
  Receive Date: 20200508
  Receipt Date: 20200508
  Transmission Date: 20200714
  Serious: Yes (Other)
  Sender: FDA-Public Use
  Company Number: US-NOVOPROD-726245

PATIENT
  Sex: Female

DRUGS (3)
  1. METFORMIN [Concomitant]
     Active Substance: METFORMIN HYDROCHLORIDE
     Indication: TYPE 2 DIABETES MELLITUS
     Dosage: UNK
     Route: 048
     Dates: end: 20200424
  2. NOVOLOG [Concomitant]
     Active Substance: INSULIN ASPART
     Indication: TYPE 2 DIABETES MELLITUS
     Dosage: UNK
     Route: 058
     Dates: start: 2017
  3. TRESIBA [Suspect]
     Active Substance: INSULIN DEGLUDEC
     Indication: TYPE 2 DIABETES MELLITUS
     Dosage: 34 IU, QD
     Route: 058
     Dates: start: 201811, end: 20200424

REACTIONS (11)
  - Dry mouth [Not Recovered/Not Resolved]
  - Muscle spasms [Unknown]
  - Asthenia [Unknown]
  - Gingival blister [Not Recovered/Not Resolved]
  - Abdominal pain upper [Unknown]
  - Malaise [Unknown]
  - Gastrooesophageal reflux disease [Unknown]
  - Dry skin [Not Recovered/Not Resolved]
  - Blindness unilateral [Not Recovered/Not Resolved]
  - Abdominal discomfort [Unknown]
  - Abdominal pain upper [Not Recovered/Not Resolved]

NARRATIVE: CASE EVENT DATE: 201811
